FAERS Safety Report 7964958-6 (Version None)
Quarter: 2011Q4

REPORT INFORMATION
  Report Type: 
  Country: None (occurrence: None)
  Receive Date: 20111208
  Receipt Date: 20111202
  Transmission Date: 20120403
  Serious: Yes (Other)
  Sender: FDA-Public Use
  Company Number: VE-ROCHE-1019393

PATIENT
  Sex: Female
  Weight: 53 kg

DRUGS (3)
  1. MABTHERA [Suspect]
     Indication: IMMUNE SYSTEM DISORDER
     Dosage: ON DAY 0
     Route: 042
     Dates: start: 20111116
  2. MABTHERA [Suspect]
     Dosage: ON DAY 15
     Route: 042
  3. MABTHERA [Suspect]
     Route: 042
     Dates: start: 20111116

REACTIONS (2)
  - CONGESTIVE CARDIOMYOPATHY [None]
  - CARDIAC FAILURE [None]
